FAERS Safety Report 12218894 (Version 1)
Quarter: 2016Q1

REPORT INFORMATION
  Report Type: Spontaneous
  Country: KR (occurrence: KR)
  Receive Date: 20160329
  Receipt Date: 20160329
  Transmission Date: 20160526
  Serious: Yes (Other)
  Sender: FDA-Public Use
  Company Number: KR-SA-2016SA061252

PATIENT
  Age: 38 Year
  Sex: Female

DRUGS (9)
  1. LEUCOVORIN. [Suspect]
     Active Substance: LEUCOVORIN
     Indication: METASTASES TO LUNG
     Route: 065
  2. FLUOROURACIL. [Suspect]
     Active Substance: FLUOROURACIL
     Indication: METASTASES TO LUNG
     Route: 065
  3. OXALIPLATIN. [Suspect]
     Active Substance: OXALIPLATIN
     Indication: METASTASES TO LUNG
     Route: 065
  4. LEUCOVORIN. [Suspect]
     Active Substance: LEUCOVORIN
     Indication: METASTATIC GASTRIC CANCER
     Route: 065
  5. FLUOROURACIL. [Suspect]
     Active Substance: FLUOROURACIL
     Indication: METASTASES TO BONE
     Route: 065
  6. FLUOROURACIL. [Suspect]
     Active Substance: FLUOROURACIL
     Indication: METASTATIC GASTRIC CANCER
     Route: 065
  7. OXALIPLATIN. [Suspect]
     Active Substance: OXALIPLATIN
     Indication: METASTATIC GASTRIC CANCER
     Route: 065
  8. OXALIPLATIN. [Suspect]
     Active Substance: OXALIPLATIN
     Indication: METASTASES TO BONE
     Route: 065
  9. LEUCOVORIN. [Suspect]
     Active Substance: LEUCOVORIN
     Indication: METASTASES TO BONE
     Route: 065

REACTIONS (3)
  - Respiratory failure [Unknown]
  - Malignant neoplasm progression [Unknown]
  - Metastases to lung [Unknown]
